FAERS Safety Report 7717041-9 (Version None)
Quarter: 2011Q3

REPORT INFORMATION
  Report Type: 
  Country: None (occurrence: None)
  Receive Date: 20110829
  Receipt Date: 20110822
  Transmission Date: 20111222
  Serious: Yes (Other)
  Sender: FDA-Public Use
  Company Number: US-AMGEN-USASP2011042886

PATIENT
  Sex: Male

DRUGS (3)
  1. PROCRIT [Concomitant]
     Indication: RENAL FAILURE CHRONIC
     Dosage: UNK UNK, Q2MO
     Dates: start: 20110818
  2. ARANESP [Suspect]
     Indication: RENAL FAILURE CHRONIC
     Dosage: 200 MUG, Q2WK
     Dates: start: 20100520, end: 20110721
  3. ARANESP [Suspect]

REACTIONS (1)
  - THERAPEUTIC RESPONSE DECREASED [None]
